FAERS Safety Report 7421437-2 (Version None)
Quarter: 2011Q2

REPORT INFORMATION
  Report Type: 
  Country: None (occurrence: None)
  Receive Date: 20110418
  Receipt Date: 20110412
  Transmission Date: 20111010
  Serious: Yes (Other)
  Sender: FDA-Public Use
  Company Number: US-BAXTER-2011BH011043

PATIENT
  Age: 57 Year
  Sex: Male

DRUGS (9)
  1. LIDOCAINE HYDROCHLORIDE [Suspect]
     Route: 042
  2. ACE INHIBITOR NOS [Concomitant]
     Indication: CARDIAC FAILURE CONGESTIVE
     Route: 065
  3. LIDOCAINE HYDROCHLORIDE [Suspect]
     Indication: VENTRICULAR TACHYCARDIA
     Route: 040
  4. AMIODARONE [Concomitant]
     Indication: CARDIAC FAILURE CONGESTIVE
     Route: 065
  5. WARFARIN [Concomitant]
     Indication: CARDIAC FAILURE CONGESTIVE
     Route: 065
  6. ALDOSTERONE [Concomitant]
     Indication: CARDIAC FAILURE CONGESTIVE
     Route: 065
  7. LIDOCAINE HYDROCHLORIDE [Suspect]
  8. BETA BLOCKING AGENTS [Concomitant]
     Indication: CARDIAC FAILURE CONGESTIVE
     Route: 065
  9. DIURETIC [Concomitant]
     Indication: CARDIAC FAILURE CONGESTIVE
     Route: 065

REACTIONS (4)
  - TREMOR [None]
  - CARDIAC ARREST [None]
  - BALANCE DISORDER [None]
  - MENTAL STATUS CHANGES [None]
